APPROVED DRUG PRODUCT: NYSTATIN
Active Ingredient: NYSTATIN
Strength: 100,000 UNITS/GM
Dosage Form/Route: OINTMENT;TOPICAL
Application: A213826 | Product #001 | TE Code: AT
Applicant: MACLEODS PHARMACEUTICALS LTD
Approved: Jan 14, 2021 | RLD: No | RS: No | Type: RX